FAERS Safety Report 5231987-5 (Version None)
Quarter: 2007Q1

REPORT INFORMATION
  Report Type: 
  Country: None (occurrence: None)
  Receive Date: 20070206
  Receipt Date: 20070125
  Transmission Date: 20070707
  Serious: Yes (Other)
  Sender: FDA-Public Use
  Company Number: FR-PFIZER INC-2007008624

PATIENT
  Sex: Female

DRUGS (2)
  1. AROMASIN [Suspect]
     Indication: BREAST NEOPLASM
  2. TRIFLUCAN [Interacting]
     Indication: ORAL FUNGAL INFECTION

REACTIONS (2)
  - ARRHYTHMIA [None]
  - DRUG INTERACTION [None]
